FAERS Safety Report 7605652-0 (Version None)
Quarter: 2011Q3

REPORT INFORMATION
  Report Type: 
  Country: None (occurrence: None)
  Receive Date: 20110713
  Receipt Date: 20110704
  Transmission Date: 20111222
  Serious: Yes (Life-Threatening, Hospitalization)
  Sender: FDA-Public Use
  Company Number: DE-MPIJNJ-2011-02133

PATIENT

DRUGS (4)
  1. VELCADE [Suspect]
     Indication: PLASMACYTOMA
     Dosage: 2 MG, UNK
     Route: 042
     Dates: start: 20090525, end: 20090824
  2. MELPHALAN HYDROCHLORIDE [Concomitant]
     Indication: PLASMACYTOMA
     Dosage: 14.1 MG, UNK
     Route: 042
     Dates: start: 20090525, end: 20090817
  3. ONDANSETRON [Concomitant]
     Indication: ANTIEMETIC SUPPORTIVE CARE
     Dosage: 8 G, UNK
     Route: 042
     Dates: start: 20090525, end: 20090817
  4. PREDNISOLONE [Concomitant]
     Indication: PLASMACYTOMA
     Dosage: 100 G, UNK
     Route: 048
     Dates: start: 20090525, end: 20090820

REACTIONS (2)
  - DIVERTICULITIS [None]
  - ILEUS [None]
